FAERS Safety Report 18492726 (Version 3)
Quarter: 2020Q4

REPORT INFORMATION
  Report Type: Spontaneous
  Country: DE (occurrence: DE)
  Receive Date: 20201111
  Receipt Date: 20201218
  Transmission Date: 20210114
  Serious: No
  Sender: FDA-Public Use
  Company Number: DE-JNJFOC-20201048311

PATIENT
  Age: 65 Year
  Sex: Female

DRUGS (3)
  1. DUROGESIC SMAT [Suspect]
     Active Substance: FENTANYL
     Indication: PRODUCT USED FOR UNKNOWN INDICATION
     Dosage: 50.00 MCG/HR
     Route: 062
  2. DUROGESIC SMAT [Suspect]
     Active Substance: FENTANYL
  3. DUROGESIC SMAT [Suspect]
     Active Substance: FENTANYL

REACTIONS (2)
  - Product adhesion issue [Unknown]
  - Wrong technique in product usage process [Unknown]
